FAERS Safety Report 17739823 (Version 1)
Quarter: 2020Q2

REPORT INFORMATION
  Report Type: Spontaneous
  Country: US (occurrence: US)
  Receive Date: 20200502
  Receipt Date: 20200502
  Transmission Date: 20200714
  Serious: No
  Sender: FDA-Public Use
  Company Number: None

PATIENT
  Age: 29 Year
  Sex: Female
  Weight: 65.25 kg

DRUGS (2)
  1. ACYCLOVIR. [Concomitant]
     Active Substance: ACYCLOVIR
  2. NUVARING [Suspect]
     Active Substance: ETHINYL ESTRADIOL\ETONOGESTREL
     Indication: PREMENSTRUAL SYNDROME
     Route: 067
     Dates: start: 20200319, end: 20200501

REACTIONS (5)
  - Acne [None]
  - Headache [None]
  - Breast enlargement [None]
  - Migraine [None]
  - Vulvovaginal discomfort [None]

NARRATIVE: CASE EVENT DATE: 20200501
